FAERS Safety Report 13688568 (Version 1)
Quarter: 2017Q2

REPORT INFORMATION
  Report Type: Spontaneous
  Country: US (occurrence: US)
  Receive Date: 20170623
  Receipt Date: 20170623
  Transmission Date: 20170830
  Serious: Yes (Disabling, Other)
  Sender: FDA-Public Use
  Company Number: None

PATIENT
  Sex: Female

DRUGS (2)
  1. ATIVAN [Suspect]
     Active Substance: LORAZEPAM
     Indication: DEPRESSION
  2. ATIVAN [Suspect]
     Active Substance: LORAZEPAM
     Indication: ANXIETY

REACTIONS (25)
  - Vomiting [None]
  - Muscle spasms [None]
  - Tremor [None]
  - Hyperhidrosis [None]
  - Nightmare [None]
  - Gastrooesophageal reflux disease [None]
  - Influenza [None]
  - Withdrawal syndrome [None]
  - Nausea [None]
  - Amnesia [None]
  - Affect lability [None]
  - Suicidal ideation [None]
  - Fibromyalgia [None]
  - Neuralgia [None]
  - Sensory disturbance [None]
  - Fear [None]
  - Irritability [None]
  - Depression [None]
  - Derealisation [None]
  - Panic attack [None]
  - Depersonalisation/derealisation disorder [None]
  - Headache [None]
  - Myalgia [None]
  - Insomnia [None]
  - Weight abnormal [None]
